FAERS Safety Report 7824441-5 (Version None)
Quarter: 2011Q4

REPORT INFORMATION
  Report Type: 
  Country: None (occurrence: None)
  Receive Date: 20111019
  Receipt Date: 20111011
  Transmission Date: 20120403
  Serious: Yes (Hospitalization)
  Sender: FDA-Public Use
  Company Number: DE-ELI_LILLY_AND_COMPANY-DE201109000907

PATIENT
  Age: 69 Year
  Sex: Female
  Weight: 90 kg

DRUGS (4)
  1. EFFIENT [Suspect]
     Indication: ACUTE CORONARY SYNDROME
     Dosage: 60 MG, UNK
     Dates: start: 20101104
  2. EFFIENT [Suspect]
     Dosage: 10 MG, UNKNOWN
     Dates: start: 20101105, end: 20110825
  3. ASPIRIN [Concomitant]
     Dosage: UNK, UNKNOWN
  4. ARIXTRA [Concomitant]
     Dosage: UNK, UNKNOWN

REACTIONS (2)
  - GASTRIC ULCER HAEMORRHAGE [None]
  - FEMUR FRACTURE [None]
